FAERS Safety Report 4431482-7 (Version None)
Quarter: 2004Q3

REPORT INFORMATION
  Report Type: 
  Country: None (occurrence: None)
  Receive Date: 20040818
  Receipt Date: 20040730
  Transmission Date: 20050211
  Serious: Yes (Hospitalization)
  Sender: FDA-Public Use
  Company Number: USA040874199

PATIENT
  Age: 85 Year
  Sex: Female

DRUGS (1)
  1. FORTEO [Suspect]
     Dates: start: 20040729

REACTIONS (5)
  - MUSCLE CRAMP [None]
  - MUSCLE SPASMS [None]
  - PAIN [None]
  - POST PROCEDURAL COMPLICATION [None]
  - SPINAL OPERATION [None]
